FAERS Safety Report 5593355-6 (Version None)
Quarter: 2008Q1

REPORT INFORMATION
  Report Type: 
  Country: None (occurrence: None)
  Receive Date: 20080114
  Receipt Date: 20080101
  Transmission Date: 20080703
  Serious: Yes (Life-Threatening, Other)
  Sender: FDA-Public Use
  Company Number: 022157

PATIENT
  Age: 31 Year
  Sex: Female
  Weight: 72.6 kg

DRUGS (1)
  1. PLAN B [Suspect]
     Indication: CONTRACEPTION
     Dosage: 1 TABLET, Q12HR, ORAL
     Route: 048
     Dates: start: 20051201, end: 20051201

REACTIONS (7)
  - DIALYSIS [None]
  - DRUG INEFFECTIVE [None]
  - ESCHERICHIA INFECTION [None]
  - PREMATURE LABOUR [None]
  - RENAL FAILURE [None]
  - SEPTIC SHOCK [None]
  - UNINTENDED PREGNANCY [None]
